FAERS Safety Report 12647350 (Version 1)
Quarter: 2016Q3

REPORT INFORMATION
  Report Type: Spontaneous
  Country: US (occurrence: None)
  Receive Date: 20160811
  Receipt Date: 20160811
  Transmission Date: 20161109
  Serious: No
  Sender: FDA-Public Use
  Company Number: None

PATIENT
  Age: 80 Year
  Sex: Female
  Weight: 62.14 kg

DRUGS (1)
  1. METRONIDAZOLE, 500MG [Suspect]
     Active Substance: METRONIDAZOLE
     Indication: HELICOBACTER INFECTION
     Route: 042
     Dates: start: 20160715, end: 20160715

REACTIONS (3)
  - Pruritus [None]
  - Headache [None]
  - Erythema [None]

NARRATIVE: CASE EVENT DATE: 20160715
